FAERS Safety Report 16288459 (Version 5)
Quarter: 2019Q4

REPORT INFORMATION
  Report Type: Spontaneous
  Country: JP (occurrence: JP)
  Receive Date: 20190509
  Receipt Date: 20191222
  Transmission Date: 20200122
  Serious: Yes (Death, Other)
  Sender: FDA-Public Use
  Company Number: JP-ABBVIE-19K-087-2775088-00

PATIENT
  Age: 47 Year
  Sex: Male
  Weight: 99.5 kg

DRUGS (16)
  1. TAZOBACTAM [Concomitant]
     Active Substance: TAZOBACTAM
     Indication: SKIN INFECTION
     Route: 041
     Dates: start: 20190424, end: 20190430
  2. MEROPENEM HYDRATE [Concomitant]
     Active Substance: MEROPENEM
     Indication: SKIN INFECTION
     Route: 041
     Dates: start: 20190322, end: 20190401
  3. DAPTOMYCIN. [Concomitant]
     Active Substance: DAPTOMYCIN
     Route: 041
     Dates: start: 20190430, end: 20190507
  4. HUMIRA [Suspect]
     Active Substance: ADALIMUMAB
     Route: 058
     Dates: start: 20190329, end: 20190329
  5. MEROPENEM HYDRATE [Concomitant]
     Active Substance: MEROPENEM
     Route: 041
     Dates: start: 20190430, end: 20190507
  6. POTASSIUM CHLORIDE. [Concomitant]
     Active Substance: POTASSIUM CHLORIDE
     Indication: HYPOKALAEMIA
     Route: 048
     Dates: start: 20190406, end: 20190423
  7. HUMIRA [Suspect]
     Active Substance: ADALIMUMAB
     Indication: HIDRADENITIS
     Route: 058
     Dates: start: 20190315, end: 20190315
  8. MEROPENEM HYDRATE [Concomitant]
     Active Substance: MEROPENEM
     Route: 041
     Dates: start: 20190405, end: 20190408
  9. PIPERACILLIN. [Concomitant]
     Active Substance: PIPERACILLIN SODIUM
     Indication: SKIN INFECTION
     Route: 041
     Dates: start: 20190424, end: 20190430
  10. CLINDAMYCIN PHOSPHATE. [Concomitant]
     Active Substance: CLINDAMYCIN PHOSPHATE
     Indication: SKIN INFECTION
     Route: 048
     Dates: start: 20190316, end: 20190430
  11. POLYCARBOPHIL CALCIUM [Concomitant]
     Active Substance: CALCIUM POLYCARBOPHIL
     Indication: DIARRHOEA
     Route: 048
     Dates: start: 20190416, end: 20190507
  12. RIFAMPICIN [Concomitant]
     Active Substance: RIFAMPIN
     Indication: SKIN INFECTION
     Route: 048
     Dates: start: 20190423, end: 20190507
  13. HUMIRA [Suspect]
     Active Substance: ADALIMUMAB
     Route: 058
     Dates: start: 20190412, end: 20190412
  14. SOYBEAN OIL [Concomitant]
     Active Substance: SOYBEAN OIL
     Indication: MALNUTRITION
     Route: 041
     Dates: start: 20190409, end: 20190412
  15. DAPTOMYCIN. [Concomitant]
     Active Substance: DAPTOMYCIN
     Route: 041
     Dates: start: 20190415, end: 20190421
  16. DAPTOMYCIN. [Concomitant]
     Active Substance: DAPTOMYCIN
     Indication: SKIN INFECTION
     Route: 041

REACTIONS (6)
  - Therapeutic product effect incomplete [Unknown]
  - C-reactive protein increased [Unknown]
  - Acute kidney injury [Not Recovered/Not Resolved]
  - Hidradenitis [Unknown]
  - Body temperature increased [Unknown]
  - Staphylococcal infection [Fatal]

NARRATIVE: CASE EVENT DATE: 2019
